FAERS Safety Report 4383725-6 (Version None)
Quarter: 2004Q2

REPORT INFORMATION
  Report Type: 
  Country: None (occurrence: None)
  Receive Date: 20040608
  Receipt Date: 20030508
  Transmission Date: 20050107
  Serious: Yes (Hospitalization)
  Sender: FDA-Public Use
  Company Number: 200312892BWH

PATIENT
  Age: 81 Year
  Sex: Male
  Weight: 72.5755 kg

DRUGS (5)
  1. CIPRO [Suspect]
     Dosage: ORAL
     Route: 048
     Dates: start: 20021016, end: 20021018
  2. ALEVE [Suspect]
     Indication: ARTHRALGIA
     Dosage: 440 MG, BID, ORAL
     Route: 048
     Dates: end: 20021017
  3. ASPIRIN [Concomitant]
  4. LISINOPRIL [Concomitant]
  5. SYNTHROID [Concomitant]

REACTIONS (4)
  - ASTHENIA [None]
  - FAECES DISCOLOURED [None]
  - GASTRIC ULCER HAEMORRHAGE [None]
  - UPPER GASTROINTESTINAL HAEMORRHAGE [None]
